FAERS Safety Report 25762449 (Version 1)
Quarter: 2025Q3

REPORT INFORMATION
  Report Type: Spontaneous
  Country: EU (occurrence: EU)
  Receive Date: 20250904
  Receipt Date: 20250904
  Transmission Date: 20251020
  Serious: Yes (Hospitalization)
  Sender: MYLAN
  Company Number: EU-JNJFOC-20250825478

PATIENT
  Age: 47 Year
  Sex: Male

DRUGS (28)
  1. ETOPOSIDE [Suspect]
     Active Substance: ETOPOSIDE
     Indication: Plasmablastic lymphoma
  2. ETOPOSIDE [Suspect]
     Active Substance: ETOPOSIDE
     Route: 065
  3. ETOPOSIDE [Suspect]
     Active Substance: ETOPOSIDE
     Route: 065
  4. ETOPOSIDE [Suspect]
     Active Substance: ETOPOSIDE
  5. PREDNISONE [Suspect]
     Active Substance: PREDNISONE
     Indication: Plasmablastic lymphoma
  6. PREDNISONE [Suspect]
     Active Substance: PREDNISONE
     Route: 065
  7. PREDNISONE [Suspect]
     Active Substance: PREDNISONE
     Route: 065
  8. PREDNISONE [Suspect]
     Active Substance: PREDNISONE
  9. VELCADE [Suspect]
     Active Substance: BORTEZOMIB
     Indication: Plasmablastic lymphoma
  10. VELCADE [Suspect]
     Active Substance: BORTEZOMIB
     Route: 065
  11. VELCADE [Suspect]
     Active Substance: BORTEZOMIB
     Route: 065
  12. VELCADE [Suspect]
     Active Substance: BORTEZOMIB
  13. ONCOVIN [Suspect]
     Active Substance: VINCRISTINE SULFATE
     Indication: Plasmablastic lymphoma
  14. ONCOVIN [Suspect]
     Active Substance: VINCRISTINE SULFATE
     Route: 065
  15. ONCOVIN [Suspect]
     Active Substance: VINCRISTINE SULFATE
     Route: 065
  16. ONCOVIN [Suspect]
     Active Substance: VINCRISTINE SULFATE
  17. CYCLOPHOSPHAMIDE [Suspect]
     Active Substance: CYCLOPHOSPHAMIDE
     Indication: Plasmablastic lymphoma
  18. CYCLOPHOSPHAMIDE [Suspect]
     Active Substance: CYCLOPHOSPHAMIDE
     Route: 065
  19. CYCLOPHOSPHAMIDE [Suspect]
     Active Substance: CYCLOPHOSPHAMIDE
     Route: 065
  20. CYCLOPHOSPHAMIDE [Suspect]
     Active Substance: CYCLOPHOSPHAMIDE
  21. EPIRUBICIN [Suspect]
     Active Substance: EPIRUBICIN
     Indication: Plasmablastic lymphoma
  22. EPIRUBICIN [Suspect]
     Active Substance: EPIRUBICIN
     Route: 065
  23. EPIRUBICIN [Suspect]
     Active Substance: EPIRUBICIN
     Route: 065
  24. EPIRUBICIN [Suspect]
     Active Substance: EPIRUBICIN
  25. RITUXIMAB [Suspect]
     Active Substance: RITUXIMAB
     Indication: Plasmablastic lymphoma
  26. RITUXIMAB [Suspect]
     Active Substance: RITUXIMAB
     Route: 065
  27. RITUXIMAB [Suspect]
     Active Substance: RITUXIMAB
     Route: 065
  28. RITUXIMAB [Suspect]
     Active Substance: RITUXIMAB

REACTIONS (2)
  - Plasmablastic lymphoma [Unknown]
  - Off label use [Unknown]
